FAERS Safety Report 4601085-X (Version None)
Quarter: 2005Q1

REPORT INFORMATION
  Report Type: 
  Country: None (occurrence: None)
  Receive Date: 20050308
  Receipt Date: 20050224
  Transmission Date: 20050727
  Serious: Yes (Hospitalization)
  Sender: FDA-Public Use
  Company Number: JP-JNJFOC-20041106198

PATIENT
  Sex: Female
  Weight: 93 kg

DRUGS (17)
  1. REMICADE [Suspect]
     Route: 042
  2. REMICADE [Suspect]
     Indication: RHEUMATOID ARTHRITIS
     Route: 042
  3. PREDNISOLONE [Suspect]
     Route: 049
  4. PREDNISOLONE [Suspect]
     Route: 049
  5. PREDNISOLONE [Suspect]
     Route: 049
  6. PREDNISOLONE [Suspect]
     Route: 049
  7. PREDNISOLONE [Suspect]
     Route: 049
  8. PREDNISOLONE [Suspect]
     Indication: RHEUMATOID ARTHRITIS
     Route: 049
  9. RHEUMATREX [Suspect]
     Route: 049
  10. RHEUMATREX [Suspect]
     Indication: RHEUMATOID ARTHRITIS
     Route: 049
  11. LOXONINE [Concomitant]
     Indication: RHEUMATOID ARTHRITIS
     Route: 049
  12. SELBEX [Concomitant]
     Route: 049
  13. ACINON [Concomitant]
     Route: 049
  14. FARNERATE [Concomitant]
  15. ROHYPNOL [Concomitant]
  16. AMOBAN [Concomitant]
     Route: 049
  17. MYSLEE [Concomitant]
     Route: 049

REACTIONS (1)
  - PNEUMOCYSTIS JIROVECI PNEUMONIA [None]
